FAERS Safety Report 4798221-1 (Version None)
Quarter: 2005Q4

REPORT INFORMATION
  Report Type: 
  Country: None (occurrence: None)
  Receive Date: 20051014
  Receipt Date: 20051006
  Transmission Date: 20060501
  Serious: Yes (Life-Threatening, Hospitalization)
  Sender: FDA-Public Use
  Company Number: 200513672EU

PATIENT
  Age: 78 Year
  Sex: Female

DRUGS (3)
  1. SEGURIL [Suspect]
     Indication: OEDEMA
     Route: 048
     Dates: end: 20050708
  2. ALDACTONE [Suspect]
     Indication: OEDEMA
     Route: 048
     Dates: end: 20050708
  3. UNKNOWN DRUG [Concomitant]

REACTIONS (12)
  - ATRIOVENTRICULAR BLOCK [None]
  - BLOOD POTASSIUM INCREASED [None]
  - BLOOD PRESSURE DECREASED [None]
  - CONFUSIONAL STATE [None]
  - DEHYDRATION [None]
  - DISORIENTATION [None]
  - GASTROENTERITIS [None]
  - HAEMODYNAMIC INSTABILITY [None]
  - HYPERKALAEMIA [None]
  - HYPONATRAEMIA [None]
  - RENAL FAILURE ACUTE [None]
  - THROMBOCYTOPENIA [None]
